FAERS Safety Report 7491039-0 (Version None)
Quarter: 2011Q2

REPORT INFORMATION
  Report Type: 
  Country: None (occurrence: None)
  Receive Date: 20110517
  Receipt Date: 20110517
  Transmission Date: 20111010
  Serious: Yes (Other)
  Sender: FDA-Public Use
  Company Number: None

PATIENT
  Age: 43 Year
  Sex: Female
  Weight: 70.3075 kg

DRUGS (1)
  1. ADVAIR DISKUS 250/50 [Suspect]
     Indication: ASTHMA
     Dosage: 1 PUFF DAILY PO
     Route: 048

REACTIONS (4)
  - ALOPECIA [None]
  - MUSCLE SPASMS [None]
  - TRICHORRHEXIS [None]
  - VISUAL ACUITY REDUCED [None]
